FAERS Safety Report 7772605-1 (Version None)
Quarter: 2011Q3

REPORT INFORMATION
  Report Type: 
  Country: None (occurrence: None)
  Receive Date: 20110922
  Receipt Date: 20110321
  Transmission Date: 20111222
  Serious: No
  Sender: FDA-Public Use
  Company Number: US-ASTRAZENECA-2011SE01178

PATIENT
  Age: 73 Year
  Sex: Female
  Weight: 56.2 kg

DRUGS (6)
  1. SEROQUEL [Suspect]
     Route: 048
  2. SEROQUEL [Suspect]
     Dosage: A SPECK. A PENCIL DOT SIZE AT NIGHT
     Route: 048
  3. SEROQUEL [Suspect]
     Route: 048
     Dates: start: 20101101
  4. LITHIUM [Concomitant]
     Dosage: 750 MG ON ALTERNATE DAY AND 900 MG
     Dates: start: 19730101
  5. PRIMIDONE [Concomitant]
  6. MELATONIN [Concomitant]

REACTIONS (16)
  - GAIT DISTURBANCE [None]
  - OEDEMA PERIPHERAL [None]
  - DRY MOUTH [None]
  - SEDATION [None]
  - CONSTIPATION [None]
  - WRONG TECHNIQUE IN DRUG USAGE PROCESS [None]
  - PAIN IN EXTREMITY [None]
  - ARTHRALGIA [None]
  - SOMNOLENCE [None]
  - HALLUCINATION [None]
  - DEPRESSION [None]
  - CHEST PAIN [None]
  - HEADACHE [None]
  - ARTHRITIS [None]
  - JOINT EFFUSION [None]
  - RHEUMATOID ARTHRITIS [None]
